FAERS Safety Report 12627470 (Version 2)
Quarter: 2016Q3

REPORT INFORMATION
  Report Type: Spontaneous
  Country: BR (occurrence: BR)
  Receive Date: 20160805
  Receipt Date: 20160926
  Transmission Date: 20161109
  Serious: Yes (Hospitalization)
  Sender: FDA-Public Use
  Company Number: BR-ELI_LILLY_AND_COMPANY-BR201607011138

PATIENT
  Sex: Male
  Weight: 80 kg

DRUGS (9)
  1. JANUVIA [Concomitant]
     Active Substance: SITAGLIPTIN PHOSPHATE
     Dosage: 50 MG, UNKNOWN
     Route: 065
  2. LASIX [Concomitant]
     Active Substance: FUROSEMIDE
     Dosage: UNK UNK, BID
     Route: 065
  3. PRESOLIN [Concomitant]
     Dosage: 25 MG, BID
     Route: 065
  4. NEBILET [Concomitant]
     Active Substance: NEBIVOLOL
     Dosage: 5 MG, UNKNOWN
     Route: 065
  5. CLORANA [Concomitant]
     Active Substance: HYDROCHLOROTHIAZIDE
     Dosage: 50 MG, UNKNOWN
     Route: 065
  6. HUMULIN N [Suspect]
     Active Substance: INSULIN HUMAN
     Indication: DIABETES MELLITUS
     Dosage: UNK UNK, QD
     Route: 058
     Dates: start: 2015
  7. PROCORALAN [Concomitant]
     Active Substance: IVABRADINE
     Dosage: 5 MG, UNKNOWN
     Route: 065
  8. SUSTRATE [Concomitant]
     Active Substance: PROPATYL NITRATE
     Dosage: UNK UNK, UNKNOWN
     Route: 065
  9. ALOPURINOL [Concomitant]
     Active Substance: ALLOPURINOL
     Dosage: 300 MG, UNKNOWN
     Route: 065

REACTIONS (5)
  - Pruritus [Recovering/Resolving]
  - Incorrect dose administered [Unknown]
  - Malignant melanoma [Recovered/Resolved]
  - Blood urea increased [Unknown]
  - Blood glucose fluctuation [Not Recovered/Not Resolved]

NARRATIVE: CASE EVENT DATE: 2015
